FAERS Safety Report 6687052-3 (Version None)
Quarter: 2010Q2

REPORT INFORMATION
  Report Type: 
  Country: None (occurrence: None)
  Receive Date: 20100419
  Receipt Date: 20100413
  Transmission Date: 20101027
  Serious: Yes (Death, Other)
  Sender: FDA-Public Use
  Company Number: US-ELI_LILLY_AND_COMPANY-US201002002818

PATIENT
  Sex: Female

DRUGS (2)
  1. GEMZAR [Suspect]
     Indication: PANCREATIC CARCINOMA STAGE II
     Dosage: 1860 MG, WEEKLY, ON 3 WEEKS, OFF 1 WEEK
     Dates: start: 20090408, end: 20090930
  2. ANZEMET [Concomitant]
     Indication: NAUSEA

REACTIONS (4)
  - ALOPECIA [None]
  - DIARRHOEA [None]
  - FATIGUE [None]
  - MALIGNANT NEOPLASM PROGRESSION [None]
